FAERS Safety Report 11330256 (Version 2)
Quarter: 2015Q3

REPORT INFORMATION
  Report Type: Spontaneous
  Country: US (occurrence: US)
  Receive Date: 20150803
  Receipt Date: 20150917
  Transmission Date: 20151125
  Serious: No
  Sender: FDA-Public Use
  Company Number: US-009507513-1507USA013218

PATIENT
  Age: 36 Year
  Sex: Female
  Weight: 101.59 kg

DRUGS (2)
  1. NEXPLANON [Suspect]
     Active Substance: ETONOGESTREL
     Dosage: 68 MG, ONE ROD PER 3 YEAR, IN LEFT ARM
     Route: 059
     Dates: start: 20150724, end: 20150724
  2. NEXPLANON [Suspect]
     Active Substance: ETONOGESTREL
     Indication: CONTRACEPTION
     Dosage: 68 MG, ONE ROD PER 3 YEAR
     Route: 059
     Dates: start: 201507

REACTIONS (2)
  - Device difficult to use [Recovered/Resolved]
  - No adverse event [Unknown]

NARRATIVE: CASE EVENT DATE: 20150724
